FAERS Safety Report 5006018-2 (Version None)
Quarter: 2006Q2

REPORT INFORMATION
  Report Type: 
  Country: None (occurrence: None)
  Receive Date: 20060518
  Receipt Date: 20060509
  Transmission Date: 20061013
  Serious: Yes (Other)
  Sender: FDA-Public Use
  Company Number: GB-ABBOTT-06P-167-0333108-00

PATIENT
  Sex: Female

DRUGS (2)
  1. HUMIRA [Suspect]
     Indication: RHEUMATOID ARTHRITIS
     Route: 058
     Dates: start: 20051201
  2. ARCOXIA [Concomitant]
     Indication: RHEUMATOID ARTHRITIS

REACTIONS (2)
  - MYOCARDIAL INFARCTION [None]
  - VENTRICULAR DYSFUNCTION [None]
